FAERS Safety Report 5654347-1 (Version None)
Quarter: 2008Q1

REPORT INFORMATION
  Report Type: 
  Country: None (occurrence: None)
  Receive Date: 20080305
  Receipt Date: 20080221
  Transmission Date: 20080703
  Serious: Yes (Other)
  Sender: FDA-Public Use
  Company Number: 2007BI017411

PATIENT
  Age: 66 Year
  Sex: Female

DRUGS (1)
  1. AVONEX [Suspect]
     Indication: MULTIPLE SCLEROSIS
     Dosage: 30 UG; QW; IM
     Route: 030
     Dates: start: 20050126

REACTIONS (5)
  - BREAST CANCER STAGE I [None]
  - BREAST MASS [None]
  - INFLUENZA LIKE ILLNESS [None]
  - STRESS [None]
  - TENDONITIS [None]
